FAERS Safety Report 8597592-8 (Version None)
Quarter: 2012Q3

REPORT INFORMATION
  Report Type: 
  Country: None (occurrence: None)
  Receive Date: 20120816
  Receipt Date: 20120808
  Transmission Date: 20120928
  Serious: Yes (Hospitalization)
  Sender: FDA-Public Use
  Company Number: US-BAYER-2012-081344

PATIENT
  Age: 22 Year
  Sex: Female
  Weight: 54.422 kg

DRUGS (3)
  1. DROSPIRENONE AND ETHINYL ESTRADIOL [Suspect]
  2. NITROFURANTOIN [Concomitant]
     Dosage: 100 MG, UNK
  3. YASMIN [Suspect]

REACTIONS (1)
  - PULMONARY EMBOLISM [None]
